FAERS Safety Report 10402405 (Version 1)
Quarter: 2014Q3

REPORT INFORMATION
  Report Type: Spontaneous
  Country: US (occurrence: None)
  Receive Date: 20140821
  Receipt Date: 20140821
  Transmission Date: 20150326
  Serious: Yes (Life-Threatening, Hospitalization)
  Sender: FDA-Public Use
  Company Number: None

PATIENT
  Age: 63 Year
  Sex: Female
  Weight: 126.1 kg

DRUGS (2)
  1. PREGABLIN 75 MG [Suspect]
     Active Substance: PREGABALIN
     Indication: NEUROPATHY PERIPHERAL
     Dosage: 1 PILL TWICE DAILY TAKEN BY MOUTH
     Route: 048
     Dates: start: 20131101, end: 20140820
  2. PREGABLIN 75 MG [Suspect]
     Active Substance: PREGABALIN
     Indication: FIBROMYALGIA
     Dosage: 1 PILL TWICE DAILY TAKEN BY MOUTH
     Route: 048
     Dates: start: 20131101, end: 20140820

REACTIONS (5)
  - Blister [None]
  - Haemorrhage [None]
  - Swelling [None]
  - Dermatitis contact [None]
  - Secretion discharge [None]

NARRATIVE: CASE EVENT DATE: 20140730
